FAERS Safety Report 6299184-2 (Version None)
Quarter: 2009Q3

REPORT INFORMATION
  Report Type: 
  Country: None (occurrence: None)
  Receive Date: 20090806
  Receipt Date: 20090729
  Transmission Date: 20100115
  Serious: Yes (Hospitalization)
  Sender: FDA-Public Use
  Company Number: JP-ASTRAZENECA-2009SE04111

PATIENT
  Age: 62 Year
  Sex: Male
  Weight: 64 kg

DRUGS (4)
  1. TENORMIN [Suspect]
     Indication: VENTRICULAR EXTRASYSTOLES
     Route: 048
     Dates: start: 20090609, end: 20090609
  2. ASPIRIN [Concomitant]
     Route: 048
     Dates: start: 20080916
  3. RENIVACE [Concomitant]
     Route: 048
     Dates: start: 20080916
  4. NORVASC [Concomitant]
     Route: 048
     Dates: start: 20080916

REACTIONS (1)
  - ANAPHYLACTIC REACTION [None]
